FAERS Safety Report 13030094 (Version 1)
Quarter: 2016Q4

REPORT INFORMATION
  Report Type: Report from Study
  Country: BR (occurrence: BR)
  Receive Date: 20161215
  Receipt Date: 20161215
  Transmission Date: 20170207
  Serious: Yes (Other)
  Sender: FDA-Public Use
  Company Number: PHHY2016BR171107

PATIENT
  Sex: Male
  Weight: 83 kg

DRUGS (1)
  1. DIOVAN HCT [Suspect]
     Active Substance: HYDROCHLOROTHIAZIDE\VALSARTAN
     Indication: HYPERTENSION
     Dosage: 1 DF (VALSARTAN 80 MG AND HYDROCHLOROTHIAZIDE UNK), QD
     Route: 048

REACTIONS (5)
  - Erysipelas [Unknown]
  - Scratch [Unknown]
  - Psoriasis [Unknown]
  - Rebound effect [Unknown]
  - Pain [Unknown]
